FAERS Safety Report 8535951-X (Version None)
Quarter: 2012Q3

REPORT INFORMATION
  Report Type: 
  Country: None (occurrence: None)
  Receive Date: 20120725
  Receipt Date: 20120723
  Transmission Date: 20120928
  Serious: Yes (Death, Other)
  Sender: FDA-Public Use
  Company Number: PHEH2006US06651

PATIENT
  Sex: Male
  Weight: 65.759 kg

DRUGS (21)
  1. PLAQUENIL [Concomitant]
     Dosage: 800 MG, QD
     Route: 048
  2. CALCIUM CARBONATE [Concomitant]
  3. CITRACAL [Concomitant]
  4. AREDIA [Suspect]
     Indication: OSTEOPOROSIS PROPHYLAXIS
  5. FAMVIR [Concomitant]
     Indication: MOUTH ULCERATION
     Dosage: UKN, PRN
  6. ZYVOX [Concomitant]
  7. INFLUENZA VACCINE [Concomitant]
  8. MEDROL [Concomitant]
  9. BACTRIM [Concomitant]
     Indication: SKIN ULCER
     Dosage: UNK TWICE WEEKLY
     Route: 048
  10. KEPPRA [Concomitant]
  11. NEXIUM [Concomitant]
  12. LORTAB [Concomitant]
  13. PROGRAF [Concomitant]
     Dosage: 2 MG, QD
     Route: 048
  14. CELLCEPT [Concomitant]
     Dosage: 2 G, QD
     Route: 048
  15. TRICOR [Concomitant]
  16. ZOMETA [Suspect]
     Indication: OSTEOPOROSIS PROPHYLAXIS
  17. CALCIUM W/VITAMIN D NOS [Concomitant]
  18. GLUCOSAMINE [Concomitant]
  19. VANCOMYCIN [Concomitant]
  20. ACYCLOVIR [Concomitant]
  21. FOSAMAX [Suspect]
     Dates: start: 19990101

REACTIONS (98)
  - SKIN EXFOLIATION [None]
  - EXCESSIVE GRANULATION TISSUE [None]
  - ULCERATIVE KERATITIS [None]
  - VERTIGO [None]
  - BONE LESION [None]
  - OBSTRUCTIVE AIRWAYS DISORDER [None]
  - PARAESTHESIA [None]
  - LACTIC ACIDOSIS [None]
  - ABDOMINAL DISTENSION [None]
  - BACK PAIN [None]
  - GINGIVITIS [None]
  - POOR PERSONAL HYGIENE [None]
  - DENTAL CARIES [None]
  - INJURY [None]
  - FOOT DEFORMITY [None]
  - NEUTROPENIA [None]
  - MACULAR OEDEMA [None]
  - BLEPHARITIS [None]
  - LEUKOCYTOSIS [None]
  - OROPHARYNGEAL PAIN [None]
  - PAIN [None]
  - ANXIETY [None]
  - VASOCONSTRICTION [None]
  - ERYTHEMA [None]
  - COUGH [None]
  - SCAR [None]
  - EXCORIATION [None]
  - SENSORY LOSS [None]
  - KYPHOSCOLIOSIS [None]
  - ATROPHY [None]
  - FATIGUE [None]
  - DYSPNOEA EXERTIONAL [None]
  - ABDOMINAL PAIN [None]
  - OSTEONECROSIS OF JAW [None]
  - DRY MOUTH [None]
  - OSTEONECROSIS [None]
  - SKIN ULCER [None]
  - GRAFT VERSUS HOST DISEASE [None]
  - COLONIC POLYP [None]
  - FALL [None]
  - IMPAIRED HEALING [None]
  - PLEURAL EFFUSION [None]
  - CARDIAC ARREST [None]
  - DEHYDRATION [None]
  - GINGIVAL RECESSION [None]
  - ARTHRALGIA [None]
  - ACTIVITIES OF DAILY LIVING IMPAIRED [None]
  - SPINAL DEFORMITY [None]
  - CONVULSION [None]
  - COLON ADENOMA [None]
  - DRY EYE [None]
  - DYSPHAGIA [None]
  - ALOPECIA [None]
  - TINNITUS [None]
  - MUSCULOSKELETAL DISCOMFORT [None]
  - OSTEORADIONECROSIS [None]
  - PNEUMONIA [None]
  - CONTUSION [None]
  - HYPOAESTHESIA [None]
  - GRAND MAL CONVULSION [None]
  - DYSARTHRIA [None]
  - HYPOTENSION [None]
  - SINUS TACHYCARDIA [None]
  - SEPTIC SHOCK [None]
  - BANDAEMIA [None]
  - NAUSEA [None]
  - BLOOD LACTIC ACID INCREASED [None]
  - EXPOSED BONE IN JAW [None]
  - MOUTH ULCERATION [None]
  - WOUND [None]
  - SUBDURAL HAEMATOMA [None]
  - JOINT RANGE OF MOTION DECREASED [None]
  - NYSTAGMUS [None]
  - TRACHEAL DEVIATION [None]
  - OSTEOARTHRITIS [None]
  - CELLULITIS [None]
  - EPISTAXIS [None]
  - TELANGIECTASIA [None]
  - CATHETER SITE INFECTION [None]
  - DYSPNOEA [None]
  - METABOLIC ACIDOSIS [None]
  - DEFORMITY [None]
  - DIARRHOEA [None]
  - CHEST DISCOMFORT [None]
  - TOXIC SHOCK SYNDROME [None]
  - PERIODONTITIS [None]
  - GINGIVAL BLEEDING [None]
  - GENERAL PHYSICAL HEALTH DETERIORATION [None]
  - OSTEOMYELITIS [None]
  - DIVERTICULUM INTESTINAL [None]
  - TOOTH FRACTURE [None]
  - SJOGREN'S SYNDROME [None]
  - OEDEMA PERIPHERAL [None]
  - CORNEAL SCAR [None]
  - RESPIRATORY DISTRESS [None]
  - LUNG INFILTRATION [None]
  - COLITIS [None]
  - CHILLS [None]
